FAERS Safety Report 4576503-6 (Version None)
Quarter: 2005Q1

REPORT INFORMATION
  Report Type: 
  Country: None (occurrence: None)
  Receive Date: 20050207
  Receipt Date: 20050127
  Transmission Date: 20050727
  Serious: Yes (Other)
  Sender: FDA-Public Use
  Company Number: 2005-01-1972

PATIENT
  Sex: Female

DRUGS (1)
  1. TEMODAR [Suspect]
     Dosage: ORAL/3 CYCLES
     Route: 048

REACTIONS (3)
  - APLASTIC ANAEMIA [None]
  - BONE MARROW DISORDER [None]
  - UNEVALUABLE EVENT [None]
